FAERS Safety Report 9027832 (Version 1)
Quarter: 2013Q1

REPORT INFORMATION
  Report Type: Spontaneous
  Country: US (occurrence: None)
  Receive Date: 20130115
  Receipt Date: 20130115
  Transmission Date: 20140127
  Serious: Yes (Hospitalization)
  Sender: FDA-Public Use
  Company Number: None

PATIENT
  Age: 42 Year
  Sex: Male
  Weight: 110.22 kg

DRUGS (1)
  1. LITHIUM [Suspect]
     Indication: AFFECTIVE DISORDER
     Route: 048
     Dates: start: 20121127, end: 20121212

REACTIONS (6)
  - Lethargy [None]
  - Vision blurred [None]
  - Gait disturbance [None]
  - Blood pressure decreased [None]
  - Speech disorder [None]
  - Body temperature increased [None]
